FAERS Safety Report 15251635 (Version 1)
Quarter: 2018Q3

REPORT INFORMATION
  Report Type: Spontaneous
  Country: US (occurrence: US)
  Receive Date: 20180807
  Receipt Date: 20180807
  Transmission Date: 20181010
  Serious: No
  Sender: FDA-Public Use
  Company Number: US-SA-2018SA214239

PATIENT
  Age: 20 Year
  Sex: Female
  Weight: 81.6 kg

DRUGS (11)
  1. SOLU?MEDROL [Concomitant]
     Active Substance: METHYLPREDNISOLONE SODIUM SUCCINATE
     Indication: ANAPHYLACTIC REACTION
     Dosage: 50 MG
     Route: 042
     Dates: start: 20180317
  2. CONCERTA [Concomitant]
     Active Substance: METHYLPHENIDATE HYDROCHLORIDE
     Dosage: 2 DF, QD
     Route: 048
     Dates: start: 20180315
  3. DIPHENHYDRAMINE. [Concomitant]
     Active Substance: DIPHENHYDRAMINE
     Indication: ANAPHYLACTIC REACTION
  4. STERILE WATER [Concomitant]
     Active Substance: WATER
     Dosage: 1 DF
     Route: 042
     Dates: start: 20180317
  5. FABRAZYME [Suspect]
     Active Substance: AGALSIDASE BETA
     Dosage: 1.04 MG/KG, QOW
     Route: 041
  6. NORMAL SALINE [Concomitant]
     Active Substance: SODIUM CHLORIDE
     Dosage: 0.9 %
     Route: 042
     Dates: start: 20180317
  7. DIPHENHYDRAMINE HYDROCHLORIDE. [Concomitant]
     Active Substance: DIPHENHYDRAMINE HYDROCHLORIDE
     Indication: PREMEDICATION
     Dosage: 50 MG
     Route: 042
     Dates: start: 20180317
  8. ACETAMINOPHEN. [Concomitant]
     Active Substance: ACETAMINOPHEN
     Indication: PREMEDICATION
     Dosage: 500 MG
     Route: 048
     Dates: start: 20180317
  9. DIPHENHYDRAMINE. [Concomitant]
     Active Substance: DIPHENHYDRAMINE
     Indication: PREMEDICATION
     Dosage: 25 MG
     Route: 048
     Dates: start: 20180317
  10. EPINEPHRINE. [Concomitant]
     Active Substance: EPINEPHRINE
     Indication: ANAPHYLACTIC REACTION
     Dosage: .3 MG
     Route: 030
     Dates: start: 20180317
  11. ATENOLOL. [Concomitant]
     Active Substance: ATENOLOL
     Dosage: 0.5 DF, QD
     Route: 048
     Dates: start: 20180315

REACTIONS (1)
  - Nasopharyngitis [Unknown]
